FAERS Safety Report 6698762-6 (Version None)
Quarter: 2010Q2

REPORT INFORMATION
  Report Type: 
  Country: None (occurrence: None)
  Receive Date: 20100427
  Receipt Date: 20100415
  Transmission Date: 20101027
  Serious: Yes (Hospitalization, Other)
  Sender: FDA-Public Use
  Company Number: PHHY2010US22165

PATIENT
  Sex: Female

DRUGS (15)
  1. TEKTURNA [Suspect]
     Indication: HYPERTENSION
     Dosage: 150 MG, QD
     Route: 048
     Dates: start: 20080410, end: 20091230
  2. TEKTURNA [Suspect]
     Indication: VASODILATATION
  3. ATENOLOL [Concomitant]
  4. ISOSORBIDE [Concomitant]
  5. FUROSEMIDE [Concomitant]
  6. WARFARIN SODIUM [Concomitant]
     Indication: DEEP VEIN THROMBOSIS
     Route: 048
  7. LEVOXYL [Concomitant]
     Indication: HYPOTHYROIDISM
     Dosage: UNK
  8. CRESTOR [Concomitant]
     Indication: HYPOTHYROIDISM
  9. BYSTOLIC [Concomitant]
     Dosage: UNK
  10. ALLOPURINOL [Concomitant]
     Dosage: UNK
  11. ASPIRIN [Concomitant]
  12. TRAZODONE HCL [Concomitant]
     Dosage: UNK
  13. RENAGEL [Concomitant]
     Indication: RENAL FAILURE
  14. VITAMIN D [Concomitant]
  15. ROCALICTNOL [Concomitant]
     Indication: RENAL FAILURE

REACTIONS (9)
  - ASTHMA [None]
  - BLOOD CREATININE INCREASED [None]
  - BLOOD POTASSIUM INCREASED [None]
  - BLOOD UREA INCREASED [None]
  - COUGH [None]
  - DEHYDRATION [None]
  - GLOMERULAR FILTRATION RATE DECREASED [None]
  - PNEUMONIA [None]
  - UPPER RESPIRATORY TRACT INFECTION [None]
